FAERS Safety Report 8520814 (Version 2)
Quarter: 2012Q4

REPORT INFORMATION
  Report Type: 
  Country: US (occurrence: US)
  Receive Date: 20120419
  Receipt Date: 20121126
  Transmission Date: 20130627
  Serious: Yes (Other)
  Sender: FDA-Public Use
  Company Number: US-ASTRAZENECA-2011SE19985

PATIENT
  Age: 46 Year
  Sex: Male

DRUGS (4)
  1. NEXIUM [Suspect]
     Route: 048
  2. NEXIUM [Suspect]
     Route: 048
  3. PRILOSEC [Suspect]
     Route: 048
  4. ZANTAC [Concomitant]

REACTIONS (7)
  - Pain [Not Recovered/Not Resolved]
  - Anxiety [Unknown]
  - Gastrooesophageal reflux disease [Unknown]
  - Barrett^s oesophagus [Unknown]
  - Condition aggravated [Unknown]
  - Intentional drug misuse [Unknown]
  - Drug ineffective [Unknown]
